FAERS Safety Report 5817331-0 (Version None)
Quarter: 2008Q3

REPORT INFORMATION
  Report Type: 
  Country: None (occurrence: None)
  Receive Date: 20080722
  Receipt Date: 20080711
  Transmission Date: 20090109
  Serious: Yes (Death, Hospitalization)
  Sender: FDA-Public Use
  Company Number: KR-ELI_LILLY_AND_COMPANY-KR200806004592

PATIENT
  Sex: Male
  Weight: 54.5 kg

DRUGS (7)
  1. PEMETREXED [Suspect]
     Indication: NON-SMALL CELL LUNG CANCER
     Dosage: 500 MG/M2
     Route: 042
     Dates: start: 20080602, end: 20080602
  2. FOLIC ACID [Concomitant]
     Indication: PROPHYLAXIS
     Dosage: 1 MG, DAILY (1/D)
     Route: 048
     Dates: start: 20080527, end: 20080613
  3. VITAMIN B-12 [Concomitant]
     Indication: PROPHYLAXIS
     Dosage: 1000 MG, DAILY (1/D)
     Route: 058
     Dates: start: 20080526, end: 20080526
  4. DEXAMETHASONE [Concomitant]
     Indication: PROPHYLAXIS
     Dosage: 8 MG, 2/D
     Route: 048
     Dates: start: 20080601, end: 20080606
  5. METHOTREXATE [Concomitant]
     Indication: METASTASES TO MENINGES
     Dosage: 15 MG, DAILY (1/D)
     Route: 037
     Dates: start: 20080526, end: 20080612
  6. ZOLPIDEM [Concomitant]
     Indication: INSOMNIA
     Dosage: UNK, UNK
     Dates: start: 20080526, end: 20080602
  7. MAGNESIUM OXIDE [Concomitant]
     Indication: CONSTIPATION
     Dates: start: 20080526, end: 20080527

REACTIONS (2)
  - NEUTROPENIA [None]
  - PNEUMONIA [None]
